FAERS Safety Report 11629025 (Version 1)
Quarter: 2015Q4

REPORT INFORMATION
  Report Type: Spontaneous
  Country: CH (occurrence: CH)
  Receive Date: 20151014
  Receipt Date: 20151014
  Transmission Date: 20160304
  Serious: Yes (Death, Hospitalization, Other)
  Sender: FDA-Public Use
  Company Number: CH-ROXANE LABORATORIES, INC.-2015-RO-01647RO

PATIENT
  Age: 80 Year
  Sex: Male

DRUGS (2)
  1. PREDNISONE. [Suspect]
     Active Substance: PREDNISONE
     Indication: TEMPORAL ARTERITIS
     Dosage: 20 MG
     Route: 065
  2. METHOTREXATE [Suspect]
     Active Substance: METHOTREXATE
     Indication: TEMPORAL ARTERITIS
     Route: 058

REACTIONS (3)
  - Acute respiratory distress syndrome [Fatal]
  - Lymphopenia [Unknown]
  - Pneumocystis jirovecii pneumonia [Unknown]
